FAERS Safety Report 8928029 (Version 1)
Quarter: 2012Q4

REPORT INFORMATION
  Report Type: Spontaneous
  Country: US (occurrence: None)
  Receive Date: 20121121
  Receipt Date: 20121121
  Transmission Date: 20130627
  Serious: No
  Sender: FDA-Public Use
  Company Number: None

PATIENT
  Age: 71 Year
  Sex: Male

DRUGS (3)
  1. DABIGATRAN [Suspect]
     Indication: ATRIAL FIBRILLATION
     Dosage: 150 MG BID PO
     Route: 048
     Dates: start: 20110923, end: 20120530
  2. DABIGATRAN [Suspect]
     Indication: CEREBROVASCULAR ACCIDENT PROPHYLAXIS
     Dosage: 150 MG BID PO
     Route: 048
     Dates: start: 20110923, end: 20120530
  3. DIGOXIN [Suspect]
     Indication: CONGESTIVE HEART FAILURE
     Dosage: 0.125 MG EVERY DAY PO
     Route: 048
     Dates: start: 20051118

REACTIONS (3)
  - Confusional state [None]
  - Delirium [None]
  - Amnesia [None]
